FAERS Safety Report 10690676 (Version 1)
Quarter: 2014Q4

REPORT INFORMATION
  Report Type: Spontaneous
  Country: US (occurrence: None)
  Receive Date: 20141222
  Receipt Date: 20141222
  Transmission Date: 20150529
  Serious: Yes (Other)
  Sender: FDA-Public Use
  Company Number: 2014-16136

PATIENT
  Age: 63 Year
  Sex: Female
  Weight: 66 kg

DRUGS (3)
  1. SYNTHROID [Concomitant]
     Active Substance: LEVOTHYROXINE SODIUM
  2. LORAZEPAM (WATSON LABORATORIES) [Suspect]
     Active Substance: LORAZEPAM
     Indication: ANXIETY
     Route: 048
     Dates: start: 201404
  3. ASPIRIN (ACETYLSALIC ACID) [Concomitant]

REACTIONS (10)
  - Drug ineffective [None]
  - Quality of life decreased [None]
  - Disturbance in attention [None]
  - Decreased appetite [None]
  - Nervousness [None]
  - Insomnia [None]
  - Feeling jittery [None]
  - Drug withdrawal syndrome [None]
  - Disability [None]
  - Weight decreased [None]

NARRATIVE: CASE EVENT DATE: 201404
